FAERS Safety Report 4316043-2 (Version None)
Quarter: 2004Q1

REPORT INFORMATION
  Report Type: 
  Country: None (occurrence: None)
  Receive Date: 20040312
  Receipt Date: 20040304
  Transmission Date: 20041129
  Serious: Yes (Hospitalization)
  Sender: FDA-Public Use
  Company Number: PHBS2004PE03090

PATIENT
  Age: 71 Year
  Sex: Male

DRUGS (6)
  1. ZOMETA [Suspect]
     Indication: METASTASES TO BONE
     Dosage: 4 MG, QMO
     Route: 042
     Dates: start: 20040101, end: 20040201
  2. CALCIUM CARBONATE [Concomitant]
     Dosage: 500 MG/D
     Route: 048
     Dates: start: 20040101
  3. IRON [Concomitant]
     Dosage: 1 TAB/D
     Route: 048
     Dates: start: 20040101, end: 20040303
  4. MULTI-VITAMINS [Concomitant]
     Dosage: 1 TAB/D
     Route: 048
     Dates: start: 20040101
  5. CLONAZEPAM [Concomitant]
     Dosage: 2 TAB/D
     Route: 048
  6. SEROXAT ^CIBA-GEIGY^ [Concomitant]
     Dosage: 20 MG/D
     Route: 048

REACTIONS (2)
  - DECREASED ACTIVITY [None]
  - HYPONATRAEMIA [None]
